FAERS Safety Report 12681317 (Version 2)
Quarter: 2016Q3

REPORT INFORMATION
  Report Type: Spontaneous
  Country: US (occurrence: US)
  Receive Date: 20160824
  Receipt Date: 20160907
  Transmission Date: 20161109
  Serious: Yes (Hospitalization, Other)
  Sender: FDA-Public Use
  Company Number: US-SA-2016SA149869

PATIENT
  Age: 57 Year
  Sex: Female

DRUGS (4)
  1. ATIVAN [Suspect]
     Active Substance: LORAZEPAM
     Route: 048
     Dates: end: 20160704
  2. XANAX [Suspect]
     Active Substance: ALPRAZOLAM
     Route: 065
  3. SOMA [Suspect]
     Active Substance: CARISOPRODOL
     Indication: MYALGIA
     Route: 048
     Dates: end: 20160704
  4. AMBIEN [Suspect]
     Active Substance: ZOLPIDEM TARTRATE
     Route: 065

REACTIONS (4)
  - Coma [Recovering/Resolving]
  - Abasia [Recovering/Resolving]
  - Hypotonia [Unknown]
  - Dysphagia [Recovering/Resolving]

NARRATIVE: CASE EVENT DATE: 20160704
